FAERS Safety Report 6227400-1 (Version None)
Quarter: 2009Q2

REPORT INFORMATION
  Report Type: 
  Country: None (occurrence: None)
  Receive Date: 20090610
  Receipt Date: 20090610
  Transmission Date: 20091009
  Serious: Yes (Disabling, Other)
  Sender: FDA-Public Use
  Company Number: None

PATIENT
  Sex: Female
  Weight: 58.9676 kg

DRUGS (1)
  1. MIRENA [Suspect]

REACTIONS (14)
  - AMNESIA [None]
  - BACK PAIN [None]
  - BREAST ENLARGEMENT [None]
  - BREAST TENDERNESS [None]
  - DEPRESSION [None]
  - JOINT SWELLING [None]
  - LOSS OF LIBIDO [None]
  - MEMORY IMPAIRMENT [None]
  - MIGRAINE [None]
  - MOOD SWINGS [None]
  - OEDEMA PERIPHERAL [None]
  - RASH [None]
  - URINARY TRACT INFECTION [None]
  - WEIGHT INCREASED [None]
